FAERS Safety Report 21915161 (Version 1)
Quarter: 2023Q1

REPORT INFORMATION
  Report Type: Spontaneous
  Country: US (occurrence: US)
  Receive Date: 20230126
  Receipt Date: 20230126
  Transmission Date: 20230417
  Serious: No
  Sender: FDA-Public Use
  Company Number: US-CATALYST PHARMACEUTICALS, INC-2022CAT00274

PATIENT
  Sex: Male

DRUGS (5)
  1. FIRDAPSE [Suspect]
     Active Substance: AMIFAMPRIDINE PHOSPHATE
     Indication: Myasthenic syndrome
     Dosage: 20 MG (2 TABLETS), 3X/DAY
     Route: 048
     Dates: start: 2022
  2. FIRDAPSE [Suspect]
     Active Substance: AMIFAMPRIDINE PHOSPHATE
     Dosage: 10 MG, 3X/DAY (THROUGHOUT THE DAY)
     Route: 048
     Dates: start: 20220413, end: 202204
  3. FIRDAPSE [Suspect]
     Active Substance: AMIFAMPRIDINE PHOSPHATE
     Dosage: 20 MG, 1X/DAY IN THE MORNING
     Route: 048
     Dates: start: 20220413, end: 202204
  4. FIRDAPSE [Suspect]
     Active Substance: AMIFAMPRIDINE PHOSPHATE
     Dosage: ^STEP UP^
     Route: 048
     Dates: start: 202204, end: 2022
  5. VITAMINS [Concomitant]
     Active Substance: VITAMINS
     Dosage: UNK, 1X/DAY

REACTIONS (4)
  - Feeling cold [Not Recovered/Not Resolved]
  - Peripheral coldness [Not Recovered/Not Resolved]
  - Diplopia [Not Recovered/Not Resolved]
  - Paraesthesia [Not Recovered/Not Resolved]

NARRATIVE: CASE EVENT DATE: 20220101
